FAERS Safety Report 5910680-7 (Version None)
Quarter: 2008Q4

REPORT INFORMATION
  Report Type: 
  Country: None (occurrence: None)
  Receive Date: 20081007
  Receipt Date: 20080926
  Transmission Date: 20090506
  Serious: Yes (Other)
  Sender: FDA-Public Use
  Company Number: BR-ROCHE-421841

PATIENT
  Age: 52 Year
  Sex: Female
  Weight: 54 kg

DRUGS (4)
  1. RIVOTRIL [Suspect]
     Dosage: STRENGTH REPORTED AS 2.5 MG/ML.
     Route: 048
     Dates: start: 20020101
  2. SERTRALINE [Concomitant]
     Route: 048
  3. ENALAPRIL MALEATE [Concomitant]
     Indication: HYPERTENSION
     Route: 048
  4. PURAN T4 [Concomitant]
     Dosage: STRENGTH REPORTED AS '25 MCG'.
     Route: 048

REACTIONS (9)
  - AMNESIA [None]
  - BALANCE DISORDER [None]
  - COORDINATION ABNORMAL [None]
  - DIZZINESS [None]
  - DRUG DEPENDENCE [None]
  - HEART RATE DECREASED [None]
  - HYPOTENSION [None]
  - ISCHAEMIA [None]
  - WEIGHT DECREASED [None]
